FAERS Safety Report 10053316 (Version 2)
Quarter: 2014Q2

REPORT INFORMATION
  Report Type: Spontaneous
  Country: AR (occurrence: AR)
  Receive Date: 20140402
  Receipt Date: 20140402
  Transmission Date: 20141212
  Serious: Yes (Other)
  Sender: FDA-Public Use
  Company Number: PHHY2014AR021325

PATIENT
  Sex: Female

DRUGS (3)
  1. TASIGNA [Suspect]
     Indication: CHRONIC MYELOID LEUKAEMIA
     Dosage: 200 MG
     Route: 048
  2. TASIGNA [Suspect]
     Dosage: 150 MG
     Route: 048
  3. TASIGNA [Suspect]
     Dosage: 150 MG
     Route: 048

REACTIONS (1)
  - Thrombocytopenia [Recovered/Resolved]
